FAERS Safety Report 24180038 (Version 4)
Quarter: 2024Q3

REPORT INFORMATION
  Report Type: Spontaneous
  Country: DE (occurrence: DE)
  Receive Date: 20240806
  Receipt Date: 20240913
  Transmission Date: 20241017
  Serious: No
  Sender: JOHNSON AND JOHNSON
  Company Number: DE-JNJFOC-20240771334

PATIENT
  Age: 61 Year
  Sex: Male
  Weight: 83 kg

DRUGS (5)
  1. STELARA [Suspect]
     Active Substance: USTEKINUMAB
     Indication: Crohn^s disease
     Route: 058
     Dates: start: 2017
  2. STELARA [Suspect]
     Active Substance: USTEKINUMAB
  3. PROLIA [Concomitant]
     Active Substance: DENOSUMAB
     Indication: Osteoporosis
     Route: 065
     Dates: start: 2022
  4. VITAMIN B12 [Concomitant]
     Active Substance: CYANOCOBALAMIN
     Indication: Abnormal faeces
     Dosage: INJECTION IN CASE OF DEFICIENCY
     Route: 065
     Dates: start: 2007
  5. FERRITIN [Concomitant]
     Active Substance: FERRITIN
     Indication: Abnormal faeces
     Dosage: INFUSION IN CASE OF DEFICIENCY
     Route: 065
     Dates: start: 2007

REACTIONS (2)
  - Device issue [Unknown]
  - Poor quality product administered [Unknown]
